FAERS Safety Report 4356611-5 (Version None)
Quarter: 2004Q2

REPORT INFORMATION
  Report Type: 
  Country: None (occurrence: None)
  Receive Date: 20040507
  Receipt Date: 20040425
  Transmission Date: 20050107
  Serious: Yes (Life-Threatening, Other)
  Sender: FDA-Public Use
  Company Number: 2003EU006325

PATIENT
  Age: 80 Year
  Sex: Female
  Weight: 65 kg

DRUGS (2)
  1. PROTOPIC [Suspect]
     Indication: DERMATITIS
     Dosage: UNKNOWN/D, TOPICAL
     Route: 061
     Dates: start: 20030507
  2. PREDNISOLONE [Concomitant]

REACTIONS (2)
  - INCREASED TENDENCY TO BRUISE [None]
  - PLATELET COUNT DECREASED [None]
